FAERS Safety Report 23272641 (Version 1)
Quarter: 2023Q4

REPORT INFORMATION
  Report Type: Report from Study
  Country: US (occurrence: None)
  Receive Date: 20231207
  Receipt Date: 20231207
  Transmission Date: 20240110
  Serious: Yes (Hospitalization, Other)
  Sender: FDA-Public Use
  Company Number: 2023A271953

PATIENT
  Age: 944 Month
  Sex: Male

DRUGS (1)
  1. LYNPARZA [Suspect]
     Active Substance: OLAPARIB
     Indication: Prostate cancer
     Route: 048
     Dates: start: 202305

REACTIONS (10)
  - COVID-19 [Unknown]
  - Peripheral swelling [Unknown]
  - Iron deficiency [Unknown]
  - Full blood count decreased [Unknown]
  - Urinary tract disorder [Unknown]
  - Haemoglobin decreased [Unknown]
  - Fatigue [Unknown]
  - Gait disturbance [Unknown]
  - Arthralgia [Unknown]
  - Back pain [Unknown]

NARRATIVE: CASE EVENT DATE: 20231001
